FAERS Safety Report 15643607 (Version 1)
Quarter: 2018Q4

REPORT INFORMATION
  Report Type: Report from Study
  Country: IT (occurrence: IT)
  Receive Date: 20181121
  Receipt Date: 20181121
  Transmission Date: 20190205
  Serious: Yes (Hospitalization)
  Sender: FDA-Public Use
  Company Number: IT-PFIZER INC-2018475289

PATIENT
  Age: 43 Year
  Sex: Male

DRUGS (5)
  1. DEPAKIN [Suspect]
     Active Substance: VALPROATE SODIUM
     Dosage: 30 DF, SINGLE
     Route: 048
     Dates: start: 20181022, end: 20181022
  2. TRAZODONE HYDROCHLORIDE. [Suspect]
     Active Substance: TRAZODONE HYDROCHLORIDE
     Dosage: 34 DF, SINGLE
     Route: 048
     Dates: start: 20181022, end: 20181022
  3. LEVOMEPROMAZINE MALEATE [Suspect]
     Active Substance: LEVOMEPROMAZINE MALEATE
     Dosage: 30 DF, SINGLE
     Route: 048
     Dates: start: 20181022, end: 20181022
  4. TRIAZOLAM. [Suspect]
     Active Substance: TRIAZOLAM
     Dosage: 40 DF, SINGLE
     Route: 048
     Dates: start: 20181022, end: 20181022
  5. TAVOR (LORAZEPAM) [Suspect]
     Active Substance: LORAZEPAM
     Dosage: 40 DF, SINGLE
     Route: 048
     Dates: start: 20181022, end: 20181022

REACTIONS (5)
  - Intentional overdose [Recovered/Resolved]
  - Sopor [Recovered/Resolved]
  - Drug abuse [Recovered/Resolved]
  - Intentional self-injury [Recovered/Resolved]
  - Somnolence [Recovered/Resolved]

NARRATIVE: CASE EVENT DATE: 20181022
